FAERS Safety Report 11173732 (Version 1)
Quarter: 2015Q2

REPORT INFORMATION
  Report Type: Other
  Country: GR (occurrence: GR)
  Receive Date: 20150609
  Receipt Date: 20150609
  Transmission Date: 20150821
  Serious: Yes (Hospitalization)
  Sender: FDA-Public Use
  Company Number: GR-ACTELION-A-CH2015-118848

PATIENT
  Age: 45 Year
  Sex: Female

DRUGS (5)
  1. FUROSEMIDE. [Concomitant]
     Active Substance: FUROSEMIDE
  2. TRACLEER [Suspect]
     Active Substance: BOSENTAN\BOSENTAN MONOHYDRATE
     Indication: PULMONARY HYPERTENSION
     Dosage: UNK
     Route: 048
  3. OXYGEN. [Concomitant]
     Active Substance: OXYGEN
  4. VELETRI [Suspect]
     Active Substance: EPOPROSTENOL
     Indication: PULMONARY HYPERTENSION
     Dosage: UNK
     Route: 042
  5. DIGOXIN. [Concomitant]
     Active Substance: DIGOXIN

REACTIONS (11)
  - Dyspnoea at rest [Recovering/Resolving]
  - Pyrexia [Recovering/Resolving]
  - Klebsiella infection [Recovered/Resolved]
  - Lung infiltration [Recovering/Resolving]
  - Catheter site infection [Recovered/Resolved]
  - Exercise tolerance decreased [Recovering/Resolving]
  - Acute respiratory failure [Recovering/Resolving]
  - Haemoptysis [Recovered/Resolved]
  - Corona virus infection [Unknown]
  - General physical health deterioration [Recovering/Resolving]
  - Hypoxia [Recovering/Resolving]
